FAERS Safety Report 17475337 (Version 4)
Quarter: 2022Q1

REPORT INFORMATION
  Report Type: Spontaneous
  Country: US (occurrence: US)
  Receive Date: 20200228
  Receipt Date: 20220113
  Transmission Date: 20220423
  Serious: No
  Sender: FDA-Public Use
  Company Number: US-PFIZER INC-2020088987

PATIENT
  Age: 52 Year
  Sex: Female
  Weight: 68 kg

DRUGS (3)
  1. XELJANZ [Suspect]
     Active Substance: TOFACITINIB CITRATE
     Indication: Rheumatoid arthritis
     Dosage: 10 MG, 2X/DAY
     Dates: start: 2014
  2. XELJANZ [Suspect]
     Active Substance: TOFACITINIB CITRATE
     Dosage: 5 MG, 2X/DAY (30-DAY SUPPLY)
     Route: 048
  3. XELJANZ [Suspect]
     Active Substance: TOFACITINIB CITRATE
     Dosage: 5 MG, 1X/DAY

REACTIONS (4)
  - Off label use [Unknown]
  - Thinking abnormal [Recovered/Resolved]
  - Fibromyalgia [Unknown]
  - Depressed mood [Unknown]

NARRATIVE: CASE EVENT DATE: 20140101
